FAERS Safety Report 6949037-9 (Version None)
Quarter: 2010Q3

REPORT INFORMATION
  Report Type: 
  Country: None (occurrence: None)
  Receive Date: 20100828
  Receipt Date: 20091201
  Transmission Date: 20110219
  Serious: No
  Sender: FDA-Public Use
  Company Number: US-ABBOTT-09P-163-0612807-00

PATIENT
  Sex: Male
  Weight: 109.87 kg

DRUGS (4)
  1. NIASPAN [Suspect]
     Indication: BLOOD TRIGLYCERIDES INCREASED
     Route: 048
     Dates: start: 20071201, end: 20090701
  2. NIASPAN [Suspect]
     Indication: LOW DENSITY LIPOPROTEIN INCREASED
     Route: 048
     Dates: start: 20090701, end: 20091101
  3. NIASPAN [Suspect]
     Route: 048
     Dates: start: 20091101
  4. NIASPAN [Suspect]
     Route: 048
     Dates: end: 20071201

REACTIONS (1)
  - MEDICATION RESIDUE [None]
